FAERS Safety Report 25819550 (Version 1)
Quarter: 2025Q3

REPORT INFORMATION
  Report Type: Spontaneous
  Country: EU (occurrence: EU)
  Receive Date: 20250918
  Receipt Date: 20250918
  Transmission Date: 20251021
  Serious: Yes (Death)
  Sender: MYLAN
  Company Number: None

PATIENT
  Age: 42 Year
  Sex: Female

DRUGS (12)
  1. BUPRENORPHINE [Suspect]
     Active Substance: BUPRENORPHINE
     Indication: Product used for unknown indication
  2. BUPRENORPHINE [Suspect]
     Active Substance: BUPRENORPHINE
     Route: 065
  3. BUPRENORPHINE [Suspect]
     Active Substance: BUPRENORPHINE
     Route: 065
  4. BUPRENORPHINE [Suspect]
     Active Substance: BUPRENORPHINE
  5. CYAMEMAZINE [Suspect]
     Active Substance: CYAMEMAZINE
     Indication: Product used for unknown indication
  6. CYAMEMAZINE [Suspect]
     Active Substance: CYAMEMAZINE
     Route: 065
  7. CYAMEMAZINE [Suspect]
     Active Substance: CYAMEMAZINE
     Route: 065
  8. CYAMEMAZINE [Suspect]
     Active Substance: CYAMEMAZINE
  9. MORPHINE [Suspect]
     Active Substance: MORPHINE
     Indication: Product used for unknown indication
  10. MORPHINE [Suspect]
     Active Substance: MORPHINE
     Route: 065
  11. MORPHINE [Suspect]
     Active Substance: MORPHINE
     Route: 065
  12. MORPHINE [Suspect]
     Active Substance: MORPHINE

REACTIONS (1)
  - Death [Fatal]
